FAERS Safety Report 7387990-2 (Version None)
Quarter: 2011Q2

REPORT INFORMATION
  Report Type: 
  Country: None (occurrence: None)
  Receive Date: 20110401
  Receipt Date: 20110314
  Transmission Date: 20111010
  Serious: Yes (Other)
  Sender: FDA-Public Use
  Company Number: US-RANBAXY-2011RR-43391

PATIENT
  Sex: Female

DRUGS (4)
  1. CIPROFLOXACIN [Suspect]
     Indication: DIVERTICULITIS
     Dosage: 500 MG, BID
  2. LEVAQUIN [Suspect]
     Indication: PRODUCT USED FOR UNKNOWN INDICATION
     Dosage: UNK
     Route: 048
     Dates: start: 20070101
  3. LEVAQUIN [Suspect]
     Indication: DIVERTICULITIS
     Dosage: 500 MG, UNK
     Route: 042
  4. MEDROL [Suspect]
     Indication: WHEEZING
     Route: 065

REACTIONS (1)
  - ROTATOR CUFF SYNDROME [None]
